FAERS Safety Report 4894713-5 (Version None)
Quarter: 2006Q1

REPORT INFORMATION
  Report Type: 
  Country: None (occurrence: None)
  Receive Date: 20060127
  Receipt Date: 20060127
  Transmission Date: 20060701
  Serious: Yes (Hospitalization)
  Sender: FDA-Public Use
  Company Number: None

PATIENT
  Sex: Female
  Weight: 54.4316 kg

DRUGS (2)
  1. ZITHROMAX [Suspect]
     Indication: COUGH
     Dosage: 2 TABLETS   FIRST DOSE
     Dates: start: 20030530, end: 20030530
  2. ZITHROMAX [Suspect]
     Indication: PHARYNGITIS
     Dosage: 2 TABLETS   FIRST DOSE
     Dates: start: 20030530, end: 20030530

REACTIONS (1)
  - CONVULSION [None]
